FAERS Safety Report 8212430-0 (Version None)
Quarter: 2012Q1

REPORT INFORMATION
  Report Type: 
  Country: None (occurrence: None)
  Receive Date: 20120315
  Receipt Date: 20120309
  Transmission Date: 20120608
  Serious: Yes (Hospitalization)
  Sender: FDA-Public Use
  Company Number: US-BAYER-2011-104584

PATIENT
  Age: 37 Year
  Sex: Female
  Weight: 138 kg

DRUGS (18)
  1. METRONIDAZOLE [Concomitant]
     Dosage: 500 MG, UNK
     Dates: start: 20091201
  2. CIPROFLOXACIN [Concomitant]
     Dosage: 500 MG
     Dates: start: 20090901
  3. PROMETRIUM [Concomitant]
     Indication: HORMONE REPLACEMENT THERAPY
     Dosage: 100 MG AT BEDTIME
     Dates: start: 20090701, end: 20100101
  4. SUMATRIPTAN [Concomitant]
     Indication: MIGRAINE
     Dosage: 50 MG, UNK
     Dates: start: 20091001
  5. OMEPRAZOLE [Concomitant]
     Indication: GASTROOESOPHAGEAL REFLUX DISEASE
     Dosage: 40 MG, UNK
     Dates: start: 20090901
  6. DICYCLOMINE [Concomitant]
     Dosage: 20 MG
     Dates: start: 20080701
  7. DICYCLOMINE [Concomitant]
     Dosage: UNK
     Dates: start: 20090901
  8. YAZ [Suspect]
     Indication: ORAL CONTRACEPTION
     Dosage: UNK
     Route: 048
     Dates: start: 20080401, end: 20090801
  9. METRONIDAZOLE [Concomitant]
     Dosage: 500 MG, UNK
     Dates: start: 20090901
  10. NABUMETONE [Concomitant]
     Dosage: UNK
     Dates: start: 20090701
  11. PROGESTERONE [Concomitant]
     Dosage: 40 MG, UNK
  12. YAZ [Suspect]
     Indication: PREMENSTRUAL SYNDROME
  13. DICYCLOMINE [Concomitant]
     Dosage: UNK
     Dates: start: 20081001
  14. DICYCLOMINE [Concomitant]
     Dosage: UNK
     Dates: start: 20090701
  15. GREEN LIZARD [Concomitant]
     Indication: GASTROOESOPHAGEAL REFLUX DISEASE
     Dosage: UNK
     Dates: start: 20090901
  16. NEXIUM [Concomitant]
     Dosage: 40 MG QD
  17. FAMOTIDINE [Concomitant]
     Indication: GASTROOESOPHAGEAL REFLUX DISEASE
     Dosage: 40 MG
     Dates: start: 20090901
  18. PHENERGAN [Concomitant]
     Dosage: 25 MG THREE TIMES DAILY AS NEEDED

REACTIONS (2)
  - GALLBLADDER DISORDER [None]
  - CHOLECYSTITIS CHRONIC [None]
